FAERS Safety Report 10598166 (Version 1)
Quarter: 2014Q4

REPORT INFORMATION
  Report Type: Spontaneous
  Country: US (occurrence: US)
  Receive Date: 20141121
  Receipt Date: 20141121
  Transmission Date: 20150529
  Serious: No
  Sender: FDA-Public Use
  Company Number: US-BAYER-2014-167974

PATIENT
  Age: 37 Year
  Sex: Female

DRUGS (1)
  1. MIRENA [Suspect]
     Active Substance: LEVONORGESTREL
     Indication: CONTRACEPTION
     Dosage: 20 MCG/24HR, CONT
     Route: 015
     Dates: start: 201404

REACTIONS (7)
  - Mood swings [None]
  - Frustration [None]
  - Mood altered [None]
  - Alopecia [None]
  - Alopecia areata [None]
  - Anxiety [None]
  - Vulvovaginal mycotic infection [None]

NARRATIVE: CASE EVENT DATE: 201404
